FAERS Safety Report 9732196 (Version 1)
Quarter: 2013Q4

REPORT INFORMATION
  Report Type: Spontaneous
  Country: GB (occurrence: GB)
  Receive Date: 20131205
  Receipt Date: 20131205
  Transmission Date: 20140711
  Serious: Yes (Death, Other)
  Sender: FDA-Public Use
  Company Number: GB-MYLANLABS-2013S1026330

PATIENT
  Age: 45 Year
  Sex: Male

DRUGS (4)
  1. CLOMIPRAMINE [Suspect]
     Indication: PRODUCT USED FOR UNKNOWN INDICATION
  2. CHLORPROMAZINE [Suspect]
     Indication: PRODUCT USED FOR UNKNOWN INDICATION
  3. CLOZARIL [Suspect]
     Indication: PRODUCT USED FOR UNKNOWN INDICATION
     Route: 048
     Dates: start: 20010701
  4. LORAZEPAM [Suspect]
     Indication: PRODUCT USED FOR UNKNOWN INDICATION

REACTIONS (11)
  - Aggression [Unknown]
  - Agitation [Fatal]
  - Antipsychotic drug level increased [Fatal]
  - Arrhythmia [Fatal]
  - Loss of consciousness [Unknown]
  - Toxicity to various agents [Fatal]
  - Fall [Unknown]
  - Myocardial infarction [Fatal]
  - Schizophrenia [Fatal]
  - Unresponsive to stimuli [Unknown]
  - Malaise [Unknown]
